FAERS Safety Report 5981598-9 (Version None)
Quarter: 2008Q4

REPORT INFORMATION
  Report Type: 
  Country: None (occurrence: None)
  Receive Date: 20081205
  Receipt Date: 20080821
  Transmission Date: 20090506
  Serious: Yes (Other)
  Sender: FDA-Public Use
  Company Number: US-BRACCO-001781

PATIENT
  Age: 60 Year
  Sex: Female

DRUGS (14)
  1. MULTIHANCE [Suspect]
     Indication: PERIPHERAL VASCULAR DISORDER
     Dosage: TOTAL DOSE 105 ML
     Route: 042
  2. MULTIHANCE [Suspect]
     Indication: ANGIOGRAM
     Dosage: TOTAL DOSE 105 ML
     Route: 042
  3. MAGNEVIST [Suspect]
     Indication: ANGIOGRAM
     Dosage: TOTAL DOSE 60 ML
     Route: 042
  4. MAGNEVIST [Suspect]
     Indication: PERIPHERAL VASCULAR DISORDER
     Dosage: TOTAL DOSE 60 ML
     Route: 042
  5. HYDRALAZINE HCL [Concomitant]
  6. ISOSORBIDE DINITRATE [Concomitant]
  7. AMLODIPINE [Concomitant]
  8. ASPIRIN [Concomitant]
  9. FUROSEMIDE                         /00032601/ [Concomitant]
  10. GABAPENTIN [Concomitant]
  11. INSULIN                            /00030501/ [Concomitant]
  12. CLONIDINE [Concomitant]
  13. ANALGESICS [Concomitant]
     Route: 048
  14. IMATINIB MESYLATE [Concomitant]
     Route: 065

REACTIONS (1)
  - NEPHROGENIC SYSTEMIC FIBROSIS [None]
